FAERS Safety Report 11771742 (Version 1)
Quarter: 2015Q4

REPORT INFORMATION
  Report Type: Spontaneous
  Country: US (occurrence: None)
  Receive Date: 20151123
  Receipt Date: 20151123
  Transmission Date: 20160304
  Serious: Yes (Disabling)
  Sender: FDA-Public Use
  Company Number: None

PATIENT
  Age: 55 Year
  Sex: Female
  Weight: 63.5 kg

DRUGS (5)
  1. WELLBUTRIN [Concomitant]
     Active Substance: BUPROPION HYDROCHLORIDE
  2. HCTZ [Concomitant]
     Active Substance: HYDROCHLOROTHIAZIDE
  3. CLINDAMYCIN [Suspect]
     Active Substance: CLINDAMYCIN\CLINDAMYCIN PHOSPHATE
     Indication: ORAL SURGERY
     Route: 048
     Dates: start: 20151118, end: 20151120
  4. HRT [Concomitant]
     Active Substance: UNSPECIFIED INGREDIENT
  5. CLINDAMYCIN [Suspect]
     Active Substance: CLINDAMYCIN\CLINDAMYCIN PHOSPHATE
     Indication: POSTOPERATIVE CARE
     Route: 048
     Dates: start: 20151118, end: 20151120

REACTIONS (2)
  - Gastritis [None]
  - Therapeutic response decreased [None]

NARRATIVE: CASE EVENT DATE: 20151120
